FAERS Safety Report 6907842-9 (Version None)
Quarter: 2010Q3

REPORT INFORMATION
  Report Type: 
  Country: None (occurrence: None)
  Receive Date: 20100712
  Receipt Date: 20100503
  Transmission Date: 20110219
  Serious: No
  Sender: FDA-Public Use
  Company Number: PR-000252

PATIENT
  Sex: Male
  Weight: 28.5766 kg

DRUGS (3)
  1. KUVAN [Suspect]
     Indication: PHENYLKETONURIA
     Dosage: (600 MG QD ORAL), (600 MG QD ORAL)
     Route: 048
     Dates: start: 20091215, end: 20100401
  2. KUVAN [Suspect]
     Indication: PHENYLKETONURIA
     Dosage: (600 MG QD ORAL), (600 MG QD ORAL)
     Route: 048
     Dates: start: 20100411
  3. FOLIC ACID [Concomitant]

REACTIONS (4)
  - DEHYDRATION [None]
  - DIARRHOEA [None]
  - VIRAL INFECTION [None]
  - VOMITING [None]
